FAERS Safety Report 16780046 (Version 1)
Quarter: 2019Q3

REPORT INFORMATION
  Report Type: Spontaneous
  Country: US (occurrence: US)
  Receive Date: 20190906
  Receipt Date: 20190906
  Transmission Date: 20191005
  Serious: No
  Sender: FDA-Public Use
  Company Number: PHEH2019US036953

PATIENT
  Sex: Male

DRUGS (1)
  1. ZOFRAN ODT [Suspect]
     Active Substance: ONDANSETRON HYDROCHLORIDE
     Indication: NAUSEA
     Dosage: 1 DF, UNK
     Route: 048
     Dates: start: 20180306, end: 20190323

REACTIONS (9)
  - Nasal congestion [Unknown]
  - Pain [Unknown]
  - Diarrhoea [Unknown]
  - Cough [Unknown]
  - Oropharyngeal pain [Unknown]
  - Streptococcal infection [Unknown]
  - Pyrexia [Unknown]
  - Chest pain [Unknown]
  - Viral infection [Unknown]
